FAERS Safety Report 8360412-0 (Version None)
Quarter: 2012Q1

REPORT INFORMATION
  Report Type: 
  Country: None (occurrence: None)
  Receive Date: 20120315
  Receipt Date: 20110308
  Transmission Date: 20120608
  Serious: Yes (Other)
  Sender: FDA-Public Use
  Company Number: PHHY2011US16751

PATIENT
  Age: 28 Year
  Sex: Female
  Weight: 99.8 kg

DRUGS (2)
  1. VITAMIN TAB [Concomitant]
  2. GILENYA [Suspect]
     Dosage: 0.5 MG, QD, ORAL
     Route: 048

REACTIONS (5)
  - NERVOUSNESS [None]
  - DIARRHOEA [None]
  - BLOOD PRESSURE DECREASED [None]
  - BRADYCARDIA [None]
  - FATIGUE [None]
